FAERS Safety Report 7035157-X (Version None)
Quarter: 2010Q4

REPORT INFORMATION
  Report Type: 
  Country: None (occurrence: None)
  Receive Date: 20101008
  Receipt Date: 20101001
  Transmission Date: 20110411
  Serious: Yes (Death, Hospitalization)
  Sender: FDA-Public Use
  Company Number: HK-BAYER-201040834GPV

PATIENT
  Age: 57 Year
  Sex: Female

DRUGS (2)
  1. NIFEDIPINE [Suspect]
     Indication: PRODUCT USED FOR UNKNOWN INDICATION
     Dosage: UNKNOWN AMOUNT
     Route: 048
  2. SLEEPING PILLS [Concomitant]
     Route: 048

REACTIONS (17)
  - ABDOMINAL DISTENSION [None]
  - ACUTE MYOCARDIAL INFARCTION [None]
  - ACUTE RESPIRATORY DISTRESS SYNDROME [None]
  - DIZZINESS [None]
  - GASTROINTESTINAL HYPOMOTILITY [None]
  - HYPERGLYCAEMIA [None]
  - HYPOTENSION [None]
  - INTESTINAL ISCHAEMIA [None]
  - LARGE INTESTINE PERFORATION [None]
  - METABOLIC ACIDOSIS [None]
  - PNEUMONIA [None]
  - RENAL IMPAIRMENT [None]
  - SEPSIS [None]
  - SHOCK [None]
  - SMALL INTESTINE GANGRENE [None]
  - SYNCOPE [None]
  - VOMITING [None]
